FAERS Safety Report 6613084-7 (Version None)
Quarter: 2010Q1

REPORT INFORMATION
  Report Type: 
  Country: None (occurrence: None)
  Receive Date: 20100223
  Receipt Date: 20100209
  Transmission Date: 20100710
  Serious: Yes (Hospitalization)
  Sender: FDA-Public Use
  Company Number: DSJ-2010-02239

PATIENT
  Age: 57 Year
  Sex: Male

DRUGS (4)
  1. BENICAR [Suspect]
     Indication: HYPERTENSION
     Dosage: 20 MG, HALF A 40 MG TAB/DAY, PER ORAL
     Route: 048
     Dates: start: 20080201
  2. BENICAR [Suspect]
     Indication: HYPERTENSION
     Dosage: 20 MG, HALF A 40 MG TAB/DAY, PER ORAL
     Route: 048
     Dates: start: 20080201
  3. METOPROLOL (METORPOLOL) (METOPROLOL) [Concomitant]
  4. PROPAFENONE (PROPAFENONE) (PROPAFENONE) [Concomitant]

REACTIONS (2)
  - ATRIAL FIBRILLATION [None]
  - DRUG INEFFECTIVE [None]
